FAERS Safety Report 23506182 (Version 1)
Quarter: 2024Q1

REPORT INFORMATION
  Report Type: Spontaneous
  Country: IT (occurrence: IT)
  Receive Date: 20240209
  Receipt Date: 20240209
  Transmission Date: 20240410
  Serious: Yes (Hospitalization)
  Sender: FDA-Public Use
  Company Number: IT-MINISAL02-950857

PATIENT
  Age: 60 Year
  Sex: Female
  Weight: 60 kg

DRUGS (10)
  1. OXALIPLATIN [Suspect]
     Active Substance: OXALIPLATIN
     Indication: Colorectal adenocarcinoma
     Dosage: OXALIPLATINO SUN* 200MG 40ML ADMINISTERED AT A DOSAGE OF 120 MG
     Route: 040
     Dates: start: 20230911
  2. FLUOROURACIL [Suspect]
     Active Substance: FLUOROURACIL
     Indication: Colorectal adenocarcinoma
     Dosage: 5 G 100 ML
     Route: 040
     Dates: start: 20230911
  3. LEUCOVORIN CALCIUM [Concomitant]
     Active Substance: LEUCOVORIN CALCIUM
     Indication: Adjuvant therapy
     Dosage: 350 MG IV PER FOLFOX 4 PROTOCOL EVERY 15 DAYS ON THE FIRST AND SECOND DAY
     Route: 040
     Dates: start: 20230911
  4. LEUCOVORIN CALCIUM [Concomitant]
     Active Substance: LEUCOVORIN CALCIUM
     Indication: Chemotherapy side effect prophylaxis
  5. GRANISETRON [Concomitant]
     Active Substance: GRANISETRON
     Indication: Vomiting
     Dosage: 3 MG IV PER FOLFOX 4 PROTOCOL EVERY 15 DAYS ON THE FIRST AND SECOND DAY
     Route: 040
     Dates: start: 20230911
  6. GRANISETRON [Concomitant]
     Active Substance: GRANISETRON
     Indication: Chemotherapy side effect prophylaxis
  7. DEXAMETHASONE [Concomitant]
     Active Substance: DEXAMETHASONE
     Indication: Chemotherapy side effect prophylaxis
     Dosage: 4 MG IV PER FOLFOX 4 PROTOCOL EVERY 15 DAYS ON THE FIRST DAY
     Route: 040
     Dates: start: 20230911
  8. DEXAMETHASONE [Concomitant]
     Active Substance: DEXAMETHASONE
     Indication: Steroid therapy
  9. GLUTATHIONE [Concomitant]
     Active Substance: GLUTATHIONE
     Indication: Chemotherapy side effect prophylaxis
     Dosage: 2.5 MG IV PER FOLFOX 4 PROTOCOL EVERY 15 DAYS ON THE FIRST AND SECOND DAY
     Route: 048
     Dates: start: 20230911
  10. GLUTATHIONE [Concomitant]
     Active Substance: GLUTATHIONE
     Indication: Antioxidant therapy

REACTIONS (4)
  - Abdominal pain [Recovering/Resolving]
  - Abdominal pain [Recovering/Resolving]
  - Melaena [Recovering/Resolving]
  - Diarrhoea [Recovering/Resolving]

NARRATIVE: CASE EVENT DATE: 20231014
